FAERS Safety Report 7374132-2 (Version None)
Quarter: 2011Q1

REPORT INFORMATION
  Report Type: 
  Country: None (occurrence: None)
  Receive Date: 20110325
  Receipt Date: 20110321
  Transmission Date: 20110831
  Serious: Yes (Other)
  Sender: FDA-Public Use
  Company Number: US-PFIZER INC-2011062665

PATIENT
  Sex: Male

DRUGS (8)
  1. WARFARIN SODIUM [Suspect]
     Indication: THROMBOSIS
     Dosage: 5 MG, ON MONDAY AND TUESDAY
     Dates: start: 20110105
  2. LISINOPRIL [Suspect]
     Indication: BLOOD PRESSURE
     Dosage: UNKNOWN, ONCE DAILY
     Dates: end: 20110303
  3. WARFARIN SODIUM [Suspect]
     Dosage: 7.5 MG, UNK
  4. VERAPAMIL HCL [Suspect]
     Indication: BLOOD PRESSURE
     Dosage: UNK
     Dates: end: 20110303
  5. FUROSEMIDE [Suspect]
     Indication: BLOOD PRESSURE
     Dosage: UNK
     Dates: end: 20110303
  6. LISINOPRIL [Suspect]
     Dosage: UNK, ALTERNATE DAY
     Dates: start: 20110303
  7. METOPROLOL [Concomitant]
     Dosage: UNK
  8. CILOSTAZOL [Concomitant]
     Indication: PERIPHERAL ARTERIAL OCCLUSIVE DISEASE
     Dosage: UNK

REACTIONS (3)
  - DYSPNOEA [None]
  - HYPOTENSION [None]
  - DIZZINESS POSTURAL [None]
